FAERS Safety Report 16340164 (Version 2)
Quarter: 2020Q1

REPORT INFORMATION
  Report Type: Spontaneous
  Country: CA (occurrence: CA)
  Receive Date: 20190522
  Receipt Date: 20200204
  Transmission Date: 20200409
  Serious: Yes (Hospitalization, Other)
  Sender: FDA-Public Use
  Company Number: CA-AUROBINDO-AUR-APL-2019-027708

PATIENT
  Age: 69 Year
  Sex: Female

DRUGS (5)
  1. SANDOSTATIN [Suspect]
     Active Substance: OCTREOTIDE ACETATE
     Dosage: 30.0 MILLIGRAM, EVERY MONTH
     Route: 030
  2. METFORMIN TABLET [Suspect]
     Active Substance: METFORMIN HYDROCHLORIDE
     Indication: PRODUCT USED FOR UNKNOWN INDICATION
     Dosage: 1.0 DOSAGE FORM, TWO TIMES A DAY
     Route: 048
  3. SANDOSTATIN [Suspect]
     Active Substance: OCTREOTIDE ACETATE
     Indication: POLYCYSTIC LIVER DISEASE
     Dosage: 20.0 MILLIGRAM
     Route: 030
  4. METFORMIN [Suspect]
     Active Substance: METFORMIN HYDROCHLORIDE
     Indication: PRODUCT USED FOR UNKNOWN INDICATION
     Dosage: UNK
     Route: 048
  5. SANDOSTATIN [Suspect]
     Active Substance: OCTREOTIDE ACETATE
     Dosage: UNK
     Route: 058

REACTIONS (13)
  - Abdominal pain [Recovered/Resolved]
  - Pain [Recovered/Resolved]
  - Diabetes mellitus [Recovered/Resolved]
  - Neoplasm [Recovered/Resolved]
  - Dizziness [Recovered/Resolved]
  - Nausea [Recovered/Resolved]
  - Vomiting [Recovered/Resolved]
  - Blood pressure diastolic decreased [Recovered/Resolved]
  - Product use in unapproved indication [Recovered/Resolved]
  - Blood pressure systolic increased [Recovered/Resolved]
  - Diaphragmatic spasm [Recovered/Resolved]
  - Ear disorder [Recovered/Resolved]
  - Hepatic pain [Recovered/Resolved]
